FAERS Safety Report 21220213 (Version 3)
Quarter: 2022Q4

REPORT INFORMATION
  Report Type: Spontaneous
  Country: DE (occurrence: DE)
  Receive Date: 20220817
  Receipt Date: 20221122
  Transmission Date: 20230113
  Serious: Yes (Death, Hospitalization, Other)
  Sender: FDA-Public Use
  Company Number: DE-BRISTOL-MYERS SQUIBB COMPANY-2022-089891

PATIENT
  Age: 84 Year

DRUGS (4)
  1. ELIQUIS [Suspect]
     Active Substance: APIXABAN
     Indication: Cerebrovascular accident prophylaxis
     Route: 048
     Dates: start: 20220728, end: 20220802
  2. LEVOTHYROXINE SODIUM [Concomitant]
     Active Substance: LEVOTHYROXINE SODIUM
     Indication: Product used for unknown indication
     Dosage: ONE IN THE MORNING
     Route: 065
  3. BISOPROLOL [Concomitant]
     Active Substance: BISOPROLOL
     Indication: Product used for unknown indication
     Dosage: TWICE PER DAY (MORNING AND EVENING)
     Route: 065
  4. Candesartan / HCT [Concomitant]
     Indication: Product used for unknown indication
     Dosage: 32/12.5 MG/ ONE HALF IN THE MORNING.
     Route: 065

REACTIONS (5)
  - Cardiac failure [Fatal]
  - Hepatic failure [Fatal]
  - Acute kidney injury [Fatal]
  - Coagulopathy [Fatal]
  - Circulatory collapse [Fatal]

NARRATIVE: CASE EVENT DATE: 20220802
